FAERS Safety Report 6669231-4 (Version None)
Quarter: 2010Q2

REPORT INFORMATION
  Report Type: 
  Country: None (occurrence: None)
  Receive Date: 20100406
  Receipt Date: 20100329
  Transmission Date: 20101027
  Serious: Yes (Hospitalization)
  Sender: FDA-Public Use
  Company Number: JP-ABBOTT-09P-087-0583680-00

PATIENT
  Age: 81 Year
  Sex: Male

DRUGS (13)
  1. LEUPROLIDE ACETATE [Suspect]
     Indication: PROSTATE CANCER STAGE II
     Route: 058
     Dates: start: 20060703
  2. BICALUTAMIDE [Concomitant]
     Indication: PROSTATE CANCER STAGE II
     Route: 048
     Dates: start: 20060208, end: 20070109
  3. DIGOXIN [Concomitant]
     Indication: DRUG USE FOR UNKNOWN INDICATION
     Route: 048
  4. LASIX [Concomitant]
     Indication: DRUG USE FOR UNKNOWN INDICATION
     Route: 048
  5. ASPIRIN [Concomitant]
     Indication: CARDIAC FAILURE
     Route: 048
     Dates: end: 20061229
  6. ASPIRIN [Concomitant]
     Indication: CARDIAC ASSISTANCE DEVICE USER
  7. NORVASC [Concomitant]
     Indication: DRUG USE FOR UNKNOWN INDICATION
     Route: 048
  8. WARFARIN SODIUM [Concomitant]
     Indication: CARDIAC FAILURE
     Route: 048
     Dates: end: 20070105
  9. WARFARIN SODIUM [Concomitant]
     Indication: CARDIAC ASSISTANCE DEVICE USER
     Route: 048
     Dates: start: 20070106, end: 20070114
  10. WARFARIN SODIUM [Concomitant]
     Route: 048
     Dates: start: 20070115
  11. PENFILL 30R [Concomitant]
     Indication: DRUG USE FOR UNKNOWN INDICATION
     Route: 058
  12. COVERSYL [Concomitant]
     Indication: HYPERTENSION
     Route: 048
  13. AVISHOT [Concomitant]
     Indication: BENIGN PROSTATIC HYPERPLASIA
     Route: 048
     Dates: start: 20070109

REACTIONS (3)
  - ARTERIOSCLEROSIS OBLITERANS [None]
  - CEREBRAL INFARCTION [None]
  - HEPATIC FUNCTION ABNORMAL [None]
